FAERS Safety Report 8217344-8 (Version None)
Quarter: 2012Q1

REPORT INFORMATION
  Report Type: 
  Country: None (occurrence: None)
  Receive Date: 20120313
  Receipt Date: 20120302
  Transmission Date: 20120608
  Serious: Yes (Hospitalization)
  Sender: FDA-Public Use
  Company Number: 2012-1129

PATIENT
  Age: 71 Year
  Sex: Female

DRUGS (6)
  1. SOMATULINE DEPOT [Suspect]
     Indication: CARCINOID SYNDROME
     Dosage: 120 MG (120 MG,1 IN 21 D), SUBCUTANEOUS
     Route: 058
     Dates: start: 20100831
  2. OCTREOTIDE ACETATE [Concomitant]
  3. NOSE SPRAY FOR ALLERGY (CETIRIZINE HYDROCHLORIDE) [Concomitant]
  4. SYMBICORT [Concomitant]
  5. PROPRANOLOL [Concomitant]
  6. SOMATULINE DEPOT [Suspect]

REACTIONS (2)
  - PNEUMONIA [None]
  - LIVER FUNCTION TEST ABNORMAL [None]
